FAERS Safety Report 16097436 (Version 3)
Quarter: 2019Q2

REPORT INFORMATION
  Report Type: Spontaneous
  Country: JP (occurrence: JP)
  Receive Date: 20190320
  Receipt Date: 20190625
  Transmission Date: 20190711
  Serious: Yes (Death, Hospitalization, Other)
  Sender: FDA-Public Use
  Company Number: JP-PFIZER INC-2019118160

PATIENT
  Age: 66 Year
  Sex: Female
  Weight: 32 kg

DRUGS (16)
  1. LONSURF [Suspect]
     Active Substance: TIPIRACIL HYDROCHLORIDE\TRIFLURIDINE
     Dosage: 40 MG, DAILY
     Dates: start: 20181220, end: 20181224
  2. LONSURF [Suspect]
     Active Substance: TIPIRACIL HYDROCHLORIDE\TRIFLURIDINE
     Dosage: 70 MG, DAILY
     Dates: start: 20190110, end: 20190114
  3. LONSURF [Suspect]
     Active Substance: TIPIRACIL HYDROCHLORIDE\TRIFLURIDINE
     Dosage: 60 MG, DAILY
     Dates: start: 20190207, end: 20190211
  4. CELECOXIB. [Concomitant]
     Active Substance: CELECOXIB
     Indication: BACK PAIN
     Dosage: 200 MG, DAILY
     Dates: start: 20180403, end: 20190302
  5. TAS 102 [Concomitant]
     Active Substance: TIPIRACIL HYDROCHLORIDE\TRIFLURIDINE
     Dosage: 70 MG, ONCE EVERY OTHER WEEK IN A Q4W DOSING SCHEDULE FROM DAYS 1 TO 5 AND DAYS 15 TO 19
  6. LONSURF [Suspect]
     Active Substance: TIPIRACIL HYDROCHLORIDE\TRIFLURIDINE
     Indication: COLON CANCER
     Dosage: 70 MG, DAILY
     Dates: start: 20181115, end: 20181119
  7. LONSURF [Suspect]
     Active Substance: TIPIRACIL HYDROCHLORIDE\TRIFLURIDINE
     Dosage: 70 MG, DAILY
     Dates: start: 20181120, end: 20181126
  8. TAS 102 [Concomitant]
     Active Substance: TIPIRACIL HYDROCHLORIDE\TRIFLURIDINE
     Dosage: 40 MG, EVERY OTHER WEEK FOR 5 DAYS
     Dates: start: 20171227
  9. LYRICA [Suspect]
     Active Substance: PREGABALIN
     Indication: NEURALGIA
     Dosage: 150 MG, DAILY
     Dates: start: 20181017
  10. LYRICA [Suspect]
     Active Substance: PREGABALIN
     Dosage: 300 MG, DAILY
     Dates: start: 20181108, end: 20190303
  11. FUROSEMIDE. [Concomitant]
     Active Substance: FUROSEMIDE
     Indication: ASCITES
     Dosage: 10 MG, 1X/DAY
     Dates: start: 20181114, end: 20190302
  12. TAS 102 [Concomitant]
     Active Substance: TIPIRACIL HYDROCHLORIDE\TRIFLURIDINE
     Dosage: 70 MG, UNK (FIRST CYCLE )
     Dates: start: 20171115
  13. LONSURF [Suspect]
     Active Substance: TIPIRACIL HYDROCHLORIDE\TRIFLURIDINE
     Dosage: 70 MG, DAILY
     Dates: start: 20190124, end: 20190128
  14. LYRICA [Suspect]
     Active Substance: PREGABALIN
     Dosage: 200 MG, DAILY
     Dates: start: 20181024
  15. TAS 102 [Concomitant]
     Active Substance: TIPIRACIL HYDROCHLORIDE\TRIFLURIDINE
     Dosage: 60 MG, IN A Q4W DOSING SCHEDULE FROM DAYS 1 TO 5 AND DAYS 15 TO 19
     Dates: start: 20190207
  16. LONSURF [Suspect]
     Active Substance: TIPIRACIL HYDROCHLORIDE\TRIFLURIDINE
     Dosage: 60 MG, DAILY
     Dates: start: 20190221, end: 20190225

REACTIONS (8)
  - Lymphangiosis carcinomatosa [Fatal]
  - Pneumonia [Recovered/Resolved]
  - Orthopnoea [Recovered/Resolved]
  - Respiratory failure [Fatal]
  - Cough [Recovered/Resolved]
  - Interstitial lung disease [Fatal]
  - Dyspnoea [Fatal]
  - Pyrexia [Recovered/Resolved]

NARRATIVE: CASE EVENT DATE: 20190225
